FAERS Safety Report 23560990 (Version 2)
Quarter: 2024Q1

REPORT INFORMATION
  Report Type: Report from Study
  Country: US (occurrence: US)
  Receive Date: 20240224
  Receipt Date: 20240318
  Transmission Date: 20240409
  Serious: Yes (Other)
  Sender: FDA-Public Use
  Company Number: US-UCBSA-2024007461

PATIENT
  Age: 87 Year
  Sex: Female

DRUGS (1)
  1. CERTOLIZUMAB PEGOL [Suspect]
     Active Substance: CERTOLIZUMAB PEGOL
     Indication: Rheumatoid arthritis
     Dosage: 400 MILLIGRAM, EV 2 WEEKS(QOW)
     Dates: start: 20240208

REACTIONS (12)
  - Cardiac disorder [Recovered/Resolved]
  - Cardiac failure congestive [Recovering/Resolving]
  - Chest pain [Recovering/Resolving]
  - Dyspnoea [Recovering/Resolving]
  - Poor quality sleep [Unknown]
  - Fatigue [Recovering/Resolving]
  - Injection site bruising [Unknown]
  - Pyrexia [Recovering/Resolving]
  - Purpura [Recovering/Resolving]
  - Gait inability [Recovering/Resolving]
  - Inappropriate schedule of product administration [Unknown]
  - Rash pruritic [Recovering/Resolving]

NARRATIVE: CASE EVENT DATE: 20240210
